FAERS Safety Report 6069770-3 (Version None)
Quarter: 2009Q1

REPORT INFORMATION
  Report Type: 
  Country: None (occurrence: None)
  Receive Date: 20090209
  Receipt Date: 20090202
  Transmission Date: 20090719
  Serious: Yes (Hospitalization)
  Sender: FDA-Public Use
  Company Number: US-KINGPHARMUSA00001-K200900100

PATIENT
  Age: 59 Year
  Sex: Female

DRUGS (23)
  1. ALTACE [Suspect]
     Dosage: 2.5 MG, QD
     Route: 048
  2. DILTIAZEM HCL [Suspect]
     Indication: ATRIAL FIBRILLATION
     Dosage: 240 MG, QD
     Route: 048
     Dates: start: 20081101
  3. NOVATREX                           /00113801/ [Suspect]
     Indication: SARCOIDOSIS
     Dosage: 15 MG, QMON
     Route: 048
     Dates: start: 20080308, end: 20081201
  4. DILATRANE                          /00012201/ [Suspect]
     Dosage: 400 MG, QD
     Route: 048
  5. CRESTOR [Suspect]
     Route: 048
  6. CORDARONE [Concomitant]
     Indication: ATRIAL FIBRILLATION
     Dosage: UNK
     Route: 048
     Dates: start: 20081101
  7. PREVISCAN                          /00261401/ [Concomitant]
     Dosage: 10 MG, UNK
     Route: 048
  8. VENTOLIN [Concomitant]
  9. SERETIDE                           /01420901/ [Concomitant]
  10. AERIUS                             /01398501/ [Concomitant]
     Route: 048
  11. ACTONEL [Concomitant]
     Route: 048
  12. OGASTRO [Concomitant]
     Route: 048
  13. IMOVANE [Concomitant]
     Route: 048
  14. DEBRIDAT                           /00465202/ [Concomitant]
  15. FORLAX [Concomitant]
  16. SPASFON                            /00765801/ [Concomitant]
  17. XANAX [Concomitant]
     Route: 048
  18. DAFLON                             /00426001/ [Concomitant]
     Route: 048
  19. SPECIAFOLDINE [Concomitant]
     Route: 048
  20. EFFERALGAN                         /00020001/ [Concomitant]
  21. SOLUPRED                           /00016209/ [Concomitant]
     Indication: SARCOIDOSIS
     Route: 048
  22. DIFFU K [Concomitant]
     Route: 048
  23. TRANSILANE                         /00869501/ [Concomitant]
     Route: 048

REACTIONS (7)
  - ASTHENIA [None]
  - BRONCHITIS [None]
  - CARDIAC FAILURE [None]
  - DYSPNOEA [None]
  - LUNG DISORDER [None]
  - PRODUCTIVE COUGH [None]
  - RALES [None]
